FAERS Safety Report 9242919 (Version 1)
Quarter: 2013Q2

REPORT INFORMATION
  Report Type: Spontaneous
  Country: DK (occurrence: FI)
  Receive Date: 20130419
  Receipt Date: 20130419
  Transmission Date: 20140414
  Serious: Yes (Life-Threatening)
  Sender: FDA-Public Use
  Company Number: FI-FRI-1000044448

PATIENT
  Age: 17 Year
  Sex: Female

DRUGS (3)
  1. CITALOPRAM [Suspect]
     Indication: PANIC DISORDER
     Dosage: 20 MG
     Route: 048
     Dates: start: 20130217, end: 20130321
  2. CITALOPRAM [Suspect]
     Indication: DEPRESSION
  3. MELATONIN [Concomitant]
     Indication: INITIAL INSOMNIA
     Route: 048
     Dates: start: 20130215

REACTIONS (9)
  - Suicidal ideation [Recovered/Resolved]
  - Aggression [Recovered/Resolved]
  - Paraesthesia [Recovered/Resolved]
  - Dyspnoea [Recovered/Resolved]
  - Hyperhidrosis [Recovered/Resolved]
  - Restlessness [Recovered/Resolved]
  - Palpitations [Recovered/Resolved]
  - Headache [Recovered/Resolved]
  - Off label use [Unknown]
